FAERS Safety Report 18221521 (Version 2)
Quarter: 2020Q3

REPORT INFORMATION
  Report Type: Spontaneous
  Country: US (occurrence: US)
  Receive Date: 20200902
  Receipt Date: 20200911
  Transmission Date: 20201103
  Serious: No
  Sender: FDA-Public Use
  Company Number: US-PFIZER INC-2020339088

PATIENT
  Age: 67 Year
  Sex: Female
  Weight: 90.72 kg

DRUGS (1)
  1. CELEBREX [Suspect]
     Active Substance: CELECOXIB
     Indication: SPINAL LAMINECTOMY
     Dosage: 200 MG, TAKE ONE IN THE MORNING AND ONE IN THE EVENING (NOW TAKING ONE EVERY 3 DAYS)

REACTIONS (2)
  - Drug ineffective [Unknown]
  - Intentional product misuse [Unknown]
